FAERS Safety Report 7128309-1 (Version None)
Quarter: 2010Q4

REPORT INFORMATION
  Report Type: 
  Country: None (occurrence: None)
  Receive Date: 20101130
  Receipt Date: 20101119
  Transmission Date: 20110411
  Serious: Yes (Other)
  Sender: FDA-Public Use
  Company Number: PHHY2010JP76736

PATIENT
  Age: 56 Year
  Sex: Male

DRUGS (5)
  1. CYCLOSPORINE [Suspect]
     Indication: ACQUIRED EPIDERMOLYSIS BULLOSA
     Route: 048
  2. BETAMETHASONE [Concomitant]
     Indication: ACQUIRED EPIDERMOLYSIS BULLOSA
     Route: 048
  3. CYCLOPHOSPHAMIDE [Concomitant]
     Indication: ACQUIRED EPIDERMOLYSIS BULLOSA
     Route: 048
  4. COLCHICINE [Concomitant]
     Indication: ACQUIRED EPIDERMOLYSIS BULLOSA
     Route: 048
  5. STEROIDS NOS [Concomitant]

REACTIONS (4)
  - BLISTER [None]
  - DIABETES MELLITUS [None]
  - MUCOSAL EROSION [None]
  - OESOPHAGEAL ULCER HAEMORRHAGE [None]
